FAERS Safety Report 17674340 (Version 1)
Quarter: 2020Q2

REPORT INFORMATION
  Report Type: Spontaneous
  Country: DE (occurrence: DE)
  Receive Date: 20200416
  Receipt Date: 20200416
  Transmission Date: 20200714
  Serious: Yes (Death, Life-Threatening, Hospitalization)
  Sender: FDA-Public Use
  Company Number: DE-TEVA-2020-DE-1222563

PATIENT
  Age: 33 Month
  Sex: Male
  Weight: 10.3 kg

DRUGS (7)
  1. FLUDARABINE [Suspect]
     Active Substance: FLUDARABINE PHOSPHATE
     Indication: AUTOSOMAL CHROMOSOME ANOMALY
     Dosage: DOSE: 4X40 MG/M2
     Route: 065
  2. THIOTEPA. [Suspect]
     Active Substance: THIOTEPA
     Indication: AUTOSOMAL CHROMOSOME ANOMALY
     Dosage: DOSE: 1X10 MG/KG
     Route: 065
  3. METHOTREXATE. [Concomitant]
     Active Substance: METHOTREXATE
     Indication: PROPHYLAXIS AGAINST GRAFT VERSUS HOST DISEASE
     Dosage: ON DAYS 1, 3 AND 6
     Route: 065
  4. FOSCAVIR [Suspect]
     Active Substance: FOSCARNET SODIUM
     Route: 065
  5. CICLOSPORIN [Suspect]
     Active Substance: CYCLOSPORINE
     Indication: PROPHYLAXIS AGAINST GRAFT VERSUS HOST DISEASE
     Route: 065
  6. ANTITHYMOCYTE GLOBULIN [Suspect]
     Active Substance: THYMOCYTE IMMUNE GLOBULIN NOS
     Indication: AUTOSOMAL CHROMOSOME ANOMALY
     Dosage: DOSE: 10MG/KG DIVIDED INTO 1X1MG/KG AND 3X3MG/KG
     Route: 065
  7. MELPHALAN. [Suspect]
     Active Substance: MELPHALAN
     Indication: AUTOSOMAL CHROMOSOME ANOMALY
     Dosage: DOSE: 2X70MG/M2
     Route: 065

REACTIONS (22)
  - Intestinal haemorrhage [Unknown]
  - Cerebral aspergillosis [Unknown]
  - Gastrointestinal necrosis [Unknown]
  - Acute kidney injury [Unknown]
  - Aplasia [Unknown]
  - Graft versus host disease in skin [Recovering/Resolving]
  - Hypertension [Unknown]
  - Large intestinal ulcer [Unknown]
  - Epstein-Barr virus infection reactivation [Unknown]
  - Systemic candida [Unknown]
  - Graft versus host disease in gastrointestinal tract [Unknown]
  - Bronchopulmonary aspergillosis [Unknown]
  - Pulmonary haemorrhage [Unknown]
  - Somnolence [Unknown]
  - Multiple organ dysfunction syndrome [Fatal]
  - Vein disorder [Unknown]
  - Mucosal inflammation [Unknown]
  - Penile ulceration [Unknown]
  - Hemiparesis [Unknown]
  - Diarrhoea [Unknown]
  - Cytomegalovirus infection reactivation [Unknown]
  - Diarrhoea haemorrhagic [Unknown]
